FAERS Safety Report 9023739 (Version 2)
Quarter: 2013Q1

REPORT INFORMATION
  Report Type: Spontaneous
  Country: TW (occurrence: TW)
  Receive Date: 20130121
  Receipt Date: 20130319
  Transmission Date: 20140127
  Serious: Yes (Hospitalization, Other)
  Sender: FDA-Public Use
  Company Number: TW-ELI_LILLY_AND_COMPANY-TW201301003597

PATIENT
  Age: 45 Year
  Sex: Female

DRUGS (6)
  1. OLANZAPINE [Suspect]
     Indication: MAJOR DEPRESSION
     Dosage: 5 MG, QD
  2. OLANZAPINE [Suspect]
     Dosage: 10 MG, QD
  3. DULOXETINE HYDROCHLORIDE [Suspect]
     Indication: MAJOR DEPRESSION
     Dosage: 60 MG, QD
  4. DULOXETINE HYDROCHLORIDE [Suspect]
     Dosage: 120 MG, QD
  5. GABAPENTIN [Concomitant]
     Indication: BACK PAIN
     Dosage: 200 MG, QD
  6. ULTRACET [Concomitant]
     Indication: BACK PAIN

REACTIONS (3)
  - Neuroleptic malignant syndrome [Recovered/Resolved]
  - Dementia with Lewy bodies [Unknown]
  - Drug ineffective [Unknown]
